FAERS Safety Report 4784778-3 (Version None)
Quarter: 2005Q3

REPORT INFORMATION
  Report Type: 
  Country: None (occurrence: None)
  Receive Date: 20050928
  Receipt Date: 20050913
  Transmission Date: 20060218
  Serious: Yes (Other)
  Sender: FDA-Public Use
  Company Number: US_0504116038

PATIENT
  Sex: Female
  Weight: 114 kg

DRUGS (26)
  1. ZYPREXA [Suspect]
     Indication: DEPRESSION
     Dosage: 20 MG/1 AT BEDTIME
     Dates: start: 19970404, end: 20040520
  2. SYNTHROID [Concomitant]
  3. TRIAMTERENE AND HYDROCHLOROTHIAZIDE [Concomitant]
  4. PREMPRO [Concomitant]
  5. CYCLOBENZAPRINE HCL [Concomitant]
  6. MEDROXYPROGESTERONE [Concomitant]
  7. ACCUPRIL [Concomitant]
  8. ADALAT [Concomitant]
  9. NAPROXEN [Concomitant]
  10. DEPAKOTE [Concomitant]
  11. HYDROCHLOROTHIAZIDE [Concomitant]
  12. ZOCOR [Concomitant]
  13. PHENTERMINE HYDROCHLORIDE [Concomitant]
  14. TOPOMAX(TOPIRAMATE) [Concomitant]
  15. ENALAPRIL [Concomitant]
  16. COZAAR [Concomitant]
  17. PROPOXYPHENE NAPSYLATE W/ ACETAMINOPHEN [Concomitant]
  18. SEROQUEL [Concomitant]
  19. GEMFIBROZIL [Concomitant]
  20. HYDROXYCHLOROQUINE SULFATE [Concomitant]
  21. GEODON [Concomitant]
  22. ALTACE [Concomitant]
  23. LAMISIL [Concomitant]
  24. PROZAC [Concomitant]
  25. IBUPROFEN [Concomitant]
  26. NYSTATIN [Concomitant]

REACTIONS (4)
  - ANAEMIA [None]
  - DIABETES MELLITUS [None]
  - PANCREATITIS [None]
  - WEIGHT INCREASED [None]
